FAERS Safety Report 23242152 (Version 2)
Quarter: 2024Q1

REPORT INFORMATION
  Report Type: Spontaneous
  Country: BG (occurrence: BG)
  Receive Date: 20231129
  Receipt Date: 20240102
  Transmission Date: 20240409
  Serious: Yes (Hospitalization, Other)
  Sender: FDA-Public Use
  Company Number: BG-Accord-388700

PATIENT
  Age: 17 Year
  Sex: Male

DRUGS (14)
  1. RISPERIDONE [Suspect]
     Active Substance: RISPERIDONE
     Indication: Intellectual disability
     Dosage: 2 MILLIGRAM, BID
     Route: 065
  2. RISPERIDONE [Suspect]
     Active Substance: RISPERIDONE
     Indication: Autism spectrum disorder
     Dosage: 2 MILLIGRAM, BID
     Route: 065
  3. QUETIAPINE [Suspect]
     Active Substance: QUETIAPINE
     Indication: Autism spectrum disorder
     Dosage: 150 MILLIGRAM, QD
     Route: 065
  4. QUETIAPINE [Suspect]
     Active Substance: QUETIAPINE
     Indication: Intellectual disability
     Dosage: 200 MILLIGRAM, QD
     Route: 065
  5. QUETIAPINE [Suspect]
     Active Substance: QUETIAPINE
     Dosage: 50 MILLIGRAM, QD
     Route: 065
  6. QUETIAPINE [Suspect]
     Active Substance: QUETIAPINE
     Dosage: 150 MILLIGRAM, QD
     Route: 065
  7. QUETIAPINE [Suspect]
     Active Substance: QUETIAPINE
     Dosage: 400 MILLIGRAM, QD (DISTRIBUTED IN DAILY DOSES OF 150 MG, 200 MG AND 50 MG)
     Route: 065
  8. CHLORPROMAZINE [Suspect]
     Active Substance: CHLORPROMAZINE
     Indication: Autism spectrum disorder
     Dosage: 100 MILLIGRAM, QD
     Route: 065
  9. CHLORPROMAZINE [Suspect]
     Active Substance: CHLORPROMAZINE
     Indication: Intellectual disability
     Dosage: 50 MILLIGRAM, QD
     Route: 065
  10. CHLORPROMAZINE [Suspect]
     Active Substance: CHLORPROMAZINE
     Dosage: 200 MILLIGRAM, QD (DISTRIBUTED IN DAILY DOSES OF 100 MG, 50 MG AND 50 MG)
     Route: 065
  11. DIAZEPAM [Suspect]
     Active Substance: DIAZEPAM
     Indication: Autism spectrum disorder
     Dosage: 10 MILLIGRAM, BID
     Route: 065
  12. DIAZEPAM [Suspect]
     Active Substance: DIAZEPAM
     Indication: Intellectual disability
     Dosage: 10 MILLIGRAM, BID
     Route: 065
  13. BIPERIDEN HYDROCHLORIDE [Suspect]
     Active Substance: BIPERIDEN HYDROCHLORIDE
     Indication: Intellectual disability
     Dosage: 2 MILLIGRAM, BID
     Route: 065
  14. BIPERIDEN HYDROCHLORIDE [Suspect]
     Active Substance: BIPERIDEN HYDROCHLORIDE
     Indication: Autism spectrum disorder
     Dosage: 2 MILLIGRAM, BID
     Route: 065

REACTIONS (2)
  - Priapism [Recovered/Resolved]
  - Off label use [Unknown]
